FAERS Safety Report 4624330-3 (Version None)
Quarter: 2005Q1

REPORT INFORMATION
  Report Type: 
  Country: None (occurrence: None)
  Receive Date: 20050330
  Receipt Date: 20050330
  Transmission Date: 20050727
  Serious: Yes (Other)
  Sender: FDA-Public Use
  Company Number: None

PATIENT
  Age: 6 Year
  Sex: Female

DRUGS (2)
  1. TEGRETOL [Suspect]
     Indication: CONVULSION
     Dosage: 100 MG THREE Q AM TWO Q NOON THREE Q HS
     Dates: end: 20010101
  2. TEGRETOL [Suspect]
     Indication: DYSPLASIA
     Dosage: 100 MG THREE Q AM TWO Q NOON THREE Q HS
     Dates: end: 20010101

REACTIONS (2)
  - COMPLEX PARTIAL SEIZURES [None]
  - CONDITION AGGRAVATED [None]
